FAERS Safety Report 6146263-6 (Version None)
Quarter: 2009Q2

REPORT INFORMATION
  Report Type: 
  Country: None (occurrence: None)
  Receive Date: 20090407
  Receipt Date: 20090325
  Transmission Date: 20091009
  Serious: No
  Sender: FDA-Public Use
  Company Number: ES-ELI_LILLY_AND_COMPANY-ES200903004395

PATIENT
  Age: 44 Year
  Sex: Female

DRUGS (6)
  1. ZYPREXA [Suspect]
     Indication: BIPOLAR DISORDER
     Dosage: 25 MG, DAILY (1/D)
     Route: 048
     Dates: start: 20090202, end: 20090217
  2. LITHIUM CARBONATE [Concomitant]
     Dosage: 1200 G, UNK
  3. LEVETIRACETAM [Concomitant]
     Dosage: 1250 G, UNK
  4. CLONAZEPAM [Concomitant]
     Dosage: 1.5 G, UNK
     Dates: start: 20090202
  5. PALIPERIDONE PALMITATE [Concomitant]
     Dosage: 9 G, UNK
     Dates: start: 20090203
  6. MAPROTILINE [Concomitant]
     Dosage: 75 G, UNK
     Dates: end: 20090204

REACTIONS (3)
  - ANAEMIA [None]
  - OVERDOSE [None]
  - THROMBOCYTOPENIA [None]
